FAERS Safety Report 5794984-7 (Version None)
Quarter: 2008Q2

REPORT INFORMATION
  Report Type: 
  Country: None (occurrence: None)
  Receive Date: 20080630
  Receipt Date: 20080407
  Transmission Date: 20081010
  Serious: Yes (Life-Threatening, Other)
  Sender: FDA-Public Use
  Company Number: US-BRISTOL-MYERS SQUIBB COMPANY-13987326

PATIENT
  Age: 69 Year
  Sex: Female

DRUGS (9)
  1. ORENCIA [Suspect]
     Indication: RHEUMATOID ARTHRITIS
     Route: 042
     Dates: start: 20071109, end: 20071109
  2. CLARITIN [Concomitant]
  3. TYLENOL [Concomitant]
  4. OXYCODONE HCL [Concomitant]
  5. METHOTREXATE [Concomitant]
  6. FOLIC ACID [Concomitant]
  7. ASACOL [Concomitant]
  8. LISINOPRIL [Concomitant]
  9. LIPITOR [Concomitant]

REACTIONS (1)
  - ANAPHYLACTIC REACTION [None]
